FAERS Safety Report 6125060-1 (Version None)
Quarter: 2009Q1

REPORT INFORMATION
  Report Type: 
  Country: None (occurrence: None)
  Receive Date: 20090318
  Receipt Date: 20090306
  Transmission Date: 20090719
  Serious: Yes (Other)
  Sender: FDA-Public Use
  Company Number: CLOF-1000469

PATIENT

DRUGS (4)
  1. CLOLAR [Suspect]
     Indication: ACUTE LYMPHOCYTIC LEUKAEMIA
     Dosage: 20 MG/M2, QDX5, INTRAVENOUS
     Route: 042
  2. THIOTEPA [Suspect]
     Indication: ACUTE LYMPHOCYTIC LEUKAEMIA
     Dosage: 10 MG/KG, ONCE, INTRAVENOUS
     Route: 042
  3. TACROLIUMS [Concomitant]
  4. MYCOPHENOLATE MOFETIL [Concomitant]

REACTIONS (2)
  - CHOLESTASIS [None]
  - GRAFT VERSUS HOST DISEASE [None]
